FAERS Safety Report 9083891 (Version 1)
Quarter: 2013Q1

REPORT INFORMATION
  Report Type: Spontaneous
  Country: IL (occurrence: IL)
  Receive Date: 20130130
  Receipt Date: 20130130
  Transmission Date: 20140127
  Serious: Yes (Other)
  Sender: FDA-Public Use
  Company Number: IL-PFIZER INC-2013036133

PATIENT
  Sex: Male

DRUGS (1)
  1. SUTENT [Suspect]
     Indication: METASTATIC RENAL CELL CARCINOMA
     Dosage: 50 MG DAILY 4 WEEKS ON, 2 WEEKS OFF

REACTIONS (4)
  - Ascites [Unknown]
  - Abdominal pain upper [Unknown]
  - Disease progression [Unknown]
  - Metastatic renal cell carcinoma [Unknown]
